FAERS Safety Report 18366418 (Version 2)
Quarter: 2020Q4

REPORT INFORMATION
  Report Type: Report from Study
  Country: US (occurrence: US)
  Receive Date: 20201009
  Receipt Date: 20201014
  Transmission Date: 20210114
  Serious: Yes (Hospitalization, Other)
  Sender: FDA-Public Use
  Company Number: US-GILEAD-2020-0498053

PATIENT
  Age: 9 Year
  Sex: Female

DRUGS (1)
  1. AZTREONAM LYSINE [Suspect]
     Active Substance: AZTREONAM LYSINE
     Indication: CYSTIC FIBROSIS LUNG
     Dosage: 75 MG, TID, EVERY OTHER MONTH
     Route: 065

REACTIONS (2)
  - Off label use [Not Recovered/Not Resolved]
  - Cystic fibrosis [Not Recovered/Not Resolved]
